FAERS Safety Report 8685221 (Version 2)
Quarter: 2013Q1

REPORT INFORMATION
  Report Type: Spontaneous
  Country: US (occurrence: US)
  Receive Date: 20120726
  Receipt Date: 20130328
  Transmission Date: 20140127
  Serious: No
  Sender: FDA-Public Use
  Company Number: US-ASTRAZENECA-2011SE47896

PATIENT
  Age: 16 Year
  Sex: Male

DRUGS (1)
  1. SEROQUEL [Suspect]
     Route: 048
     Dates: start: 2009

REACTIONS (6)
  - Activities of daily living impaired [Unknown]
  - Depression [Unknown]
  - Social avoidant behaviour [Unknown]
  - Apathy [Unknown]
  - Bipolar disorder [Unknown]
  - Drug dose omission [Unknown]
